FAERS Safety Report 25724014 (Version 2)
Quarter: 2025Q3

REPORT INFORMATION
  Report Type: Spontaneous
  Country: GT (occurrence: GT)
  Receive Date: 20250826
  Receipt Date: 20250828
  Transmission Date: 20251021
  Serious: Yes (Disabling)
  Sender: ROCHE
  Company Number: GT-ROCHE-10000356932

PATIENT
  Age: 40 Year
  Sex: Male

DRUGS (9)
  1. AVASTIN [Suspect]
     Active Substance: BEVACIZUMAB
     Indication: Diabetic retinopathy
     Dosage: DOSE: 1.25 MG/DL?AVASTIN 100 MG/4 ML (BEVACIZUMAB)
     Route: 050
     Dates: start: 20250717
  2. PREDNISONE ACETATE [Concomitant]
     Active Substance: PREDNISONE ACETATE
     Dosage: DOSE WAS NOT REPORTED
  3. MOXIFLOXACIN [Concomitant]
     Active Substance: MOXIFLOXACIN
     Dosage: DOSE WAS NOT REPORTED
  4. TROPICAMIDE [Concomitant]
     Active Substance: TROPICAMIDE
     Dosage: DOSE WAS NOT REPORTED
  5. PHENYLEPHRINE [Concomitant]
     Active Substance: PHENYLEPHRINE
     Dosage: DOSE WAS NOT REPORTED
  6. VANCOMYCIN [Concomitant]
     Active Substance: VANCOMYCIN
     Route: 050
     Dates: start: 20250721
  7. CEFTAZIDIME [Concomitant]
     Active Substance: CEFTAZIDIME
     Route: 050
     Dates: start: 20250721
  8. DEXAMETHASONE [Concomitant]
     Active Substance: DEXAMETHASONE
     Route: 050
     Dates: start: 20250721
  9. DEXAMETHASONE [Concomitant]
     Active Substance: DEXAMETHASONE
     Dosage: DOSE WAS NOT REPORTED

REACTIONS (13)
  - Visual acuity reduced [Recovered/Resolved]
  - Eye pain [Recovered/Resolved]
  - Conjunctival hyperaemia [Unknown]
  - Corneal disorder [Unknown]
  - Anterior chamber cell [Unknown]
  - Hypotony of eye [Unknown]
  - Vitreal cells [Unknown]
  - Off label use [Unknown]
  - Pain [Unknown]
  - Hyperaemia [Unknown]
  - Corneal striae [Unknown]
  - Choroiditis [Unknown]
  - Retinal ischaemia [Unknown]

NARRATIVE: CASE EVENT DATE: 20250717
